FAERS Safety Report 7210221-0 (Version None)
Quarter: 2011Q1

REPORT INFORMATION
  Report Type: 
  Country: None (occurrence: None)
  Receive Date: 20110105
  Receipt Date: 20110103
  Transmission Date: 20110831
  Serious: Yes (Other)
  Sender: FDA-Public Use
  Company Number: US-JNJFOC-20101108648

PATIENT
  Sex: Male
  Weight: 29.48 kg

DRUGS (2)
  1. PREVACID [Concomitant]
     Indication: GASTROOESOPHAGEAL REFLUX DISEASE
     Route: 048
  2. CONCERTA [Suspect]
     Indication: ATTENTION DEFICIT/HYPERACTIVITY DISORDER
     Route: 048

REACTIONS (9)
  - HALLUCINATIONS, MIXED [None]
  - MOOD ALTERED [None]
  - FEELING ABNORMAL [None]
  - FLAT AFFECT [None]
  - BALANCE DISORDER [None]
  - ABASIA [None]
  - TIC [None]
  - DYSKINESIA [None]
  - PSYCHOTIC DISORDER [None]
